FAERS Safety Report 9794169 (Version 2)
Quarter: 2014Q1

REPORT INFORMATION
  Report Type: Spontaneous
  Country: US (occurrence: US)
  Receive Date: 20140102
  Receipt Date: 20140102
  Transmission Date: 20141002
  Serious: No
  Sender: FDA-Public Use
  Company Number: US-AMGEN-USASP2013086042

PATIENT
  Age: 67 Year
  Sex: Female
  Weight: 70.3 kg

DRUGS (10)
  1. ENBREL [Suspect]
     Indication: PSORIASIS
     Dosage: 50 MG, 2 TIMES/WK (BIWEEKLY)
     Route: 058
     Dates: start: 20131022, end: 20131112
  2. ATENOLOL [Concomitant]
     Indication: HYPERTENSION
     Dosage: 25 MG, QD
     Route: 048
     Dates: start: 201306
  3. BIOTIN [Concomitant]
     Dosage: 5000 UNK, QD
     Route: 048
     Dates: start: 201306
  4. HAWTHORN                           /01349301/ [Concomitant]
     Dosage: 150 UNK, QD
     Route: 048
     Dates: start: 201306
  5. HYDROCHLOROTHIAZIDE [Concomitant]
     Indication: HYPERTENSION
     Dosage: 25 MG, QD
     Route: 048
     Dates: start: 201306
  6. POTASSIUM CHLORIDE [Concomitant]
     Indication: POLYURIA
     Dosage: 10 MUG, QD
     Route: 048
     Dates: start: 201306
  7. PREMARIN [Concomitant]
     Indication: HYSTERECTOMY
     Dosage: 0.625 MG, QD
     Route: 048
     Dates: start: 201306
  8. PRILOSEC                           /00661201/ [Concomitant]
     Indication: GASTROOESOPHAGEAL REFLUX DISEASE
     Dosage: 20 MG, QD
     Route: 048
     Dates: start: 201306
  9. VITAMIN D3 [Concomitant]
     Dosage: 4000 UNIT, QD
     Route: 048
     Dates: start: 201306
  10. ZYRTEC [Concomitant]
     Dosage: 10 MG, QD
     Route: 048
     Dates: start: 201306

REACTIONS (2)
  - Diarrhoea [Recovered/Resolved]
  - Injection site reaction [Recovered/Resolved]
